FAERS Safety Report 19447199 (Version 3)
Quarter: 2022Q1

REPORT INFORMATION
  Report Type: Spontaneous
  Country: US (occurrence: US)
  Receive Date: 20210622
  Receipt Date: 20220114
  Transmission Date: 20220423
  Serious: Yes (Hospitalization, Other)
  Sender: FDA-Public Use
  Company Number: US-SA-SAC20210621000029

PATIENT
  Age: 49 Year
  Sex: Male

DRUGS (1)
  1. AUBAGIO [Suspect]
     Active Substance: TERIFLUNOMIDE
     Indication: Multiple sclerosis
     Dosage: 14 MG, QD
     Route: 048
     Dates: start: 20210520, end: 202107

REACTIONS (11)
  - Multiple sclerosis relapse [Unknown]
  - Confusional state [Unknown]
  - Muscle spasms [Unknown]
  - Hospitalisation [Unknown]
  - Multiple sclerosis relapse [Unknown]
  - Joint swelling [Unknown]
  - Fatigue [Unknown]
  - Pain [Unknown]
  - Fatigue [Unknown]
  - Back pain [Unknown]
  - Pain in extremity [Unknown]

NARRATIVE: CASE EVENT DATE: 20210101
